FAERS Safety Report 20652414 (Version 1)
Quarter: 2022Q1

REPORT INFORMATION
  Report Type: Spontaneous
  Country: US (occurrence: US)
  Receive Date: 20220330
  Receipt Date: 20220330
  Transmission Date: 20220423
  Serious: Yes (Other)
  Sender: FDA-Public Use
  Company Number: US-NOVARTISTESTPH-NVSC2022US069497

PATIENT
  Sex: Male

DRUGS (4)
  1. BICALUTAMIDE [Suspect]
     Active Substance: BICALUTAMIDE
     Indication: Hormone-refractory prostate cancer
     Dosage: UNK
     Route: 065
     Dates: start: 20190513, end: 20190718
  2. BICALUTAMIDE [Suspect]
     Active Substance: BICALUTAMIDE
     Dosage: UNK
     Route: 065
     Dates: start: 20210107, end: 20210624
  3. FINASTERIDE [Suspect]
     Active Substance: FINASTERIDE
     Indication: Hormone-refractory prostate cancer
     Dosage: UNK
     Route: 065
     Dates: start: 20190426, end: 20200505
  4. ENZALUTAMIDE [Suspect]
     Active Substance: ENZALUTAMIDE
     Indication: Hormone-refractory prostate cancer
     Dosage: UNK
     Route: 065
     Dates: start: 20210708

REACTIONS (3)
  - Metastases to bone [Unknown]
  - Metastases to retroperitoneum [Unknown]
  - Retroperitoneal lymphadenopathy [Unknown]
